FAERS Safety Report 20848930 (Version 1)
Quarter: 2022Q2

REPORT INFORMATION
  Report Type: Spontaneous
  Country: US (occurrence: US)
  Receive Date: 20220519
  Receipt Date: 20220519
  Transmission Date: 20220721
  Serious: No
  Sender: FDA-Public Use
  Company Number: US-drreddys-SPO/USA/22/0149692

PATIENT
  Age: 78 Year

DRUGS (1)
  1. ACCUTANE [Suspect]
     Active Substance: ISOTRETINOIN
     Indication: Acne
     Dosage: RMA ISSUE DATE: 26 JANUARY 2022 11:22:09 AM, 28 FEBRUARY 2022 02:36:06 PM

REACTIONS (2)
  - Drug ineffective [Unknown]
  - Product quality issue [Unknown]
